FAERS Safety Report 8449934-1 (Version None)
Quarter: 2012Q2

REPORT INFORMATION
  Report Type: 
  Country: None (occurrence: None)
  Receive Date: 20120620
  Receipt Date: 20120614
  Transmission Date: 20120825
  Serious: Yes (Hospitalization)
  Sender: FDA-Public Use
  Company Number: PHHO2012DE009075

PATIENT
  Age: 60 Year
  Sex: Female
  Weight: 78 kg

DRUGS (5)
  1. PREDNISOLONE [Concomitant]
     Dosage: 10 MG, QD
     Route: 048
     Dates: start: 20120405
  2. MYCOPHENOLIC ACID [Suspect]
     Indication: PANCREAS TRANSPLANT
     Dosage: 180 MG, BID
     Route: 048
     Dates: start: 20120221, end: 20120606
  3. PREDNISOLONE [Concomitant]
     Indication: PANCREAS TRANSPLANT
     Dosage: 5 MG, QD
     Route: 048
     Dates: start: 20120221
  4. PROGRAF [Concomitant]
     Dosage: 6 MG, QD
     Route: 048
     Dates: start: 20120403
  5. PROGRAF [Concomitant]
     Indication: PANCREAS TRANSPLANT
     Dosage: 4 MG, QD
     Dates: start: 20120221

REACTIONS (2)
  - MUCOSAL INFLAMMATION [None]
  - DIARRHOEA [None]
